FAERS Safety Report 8922660 (Version 1)
Quarter: 2012Q4

REPORT INFORMATION
  Report Type: Spontaneous
  Country: US (occurrence: None)
  Receive Date: 20121115
  Receipt Date: 20121115
  Transmission Date: 20130627
  Serious: Yes (Other)
  Sender: FDA-Public Use
  Company Number: US-DEXPHARM-20121447

PATIENT
  Age: 82 Year
  Sex: Female
  Weight: 54.88 kg

DRUGS (11)
  1. OMEPRAZOLE [Suspect]
     Indication: GASTROESOPHAGEAL REFLUX DISEASE
     Route: 048
     Dates: start: 200803, end: 20121018
  2. DIGOXIN [Suspect]
     Route: 048
  3. ASPRIIN [Concomitant]
  4. TOPROL XR [Concomitant]
  5. FUROSEMIDE [Concomitant]
  6. SIMVASTATIN [Concomitant]
  7. EVISTA [Concomitant]
  8. VESICARE [Concomitant]
  9. LEVOXYL [Concomitant]
  10. ASPIRIN [Concomitant]
  11. FOSAMAX [Concomitant]

REACTIONS (4)
  - Nausea [None]
  - Heart rate increased [None]
  - Arrhythmia [None]
  - Drug interaction [None]
